FAERS Safety Report 9935073 (Version 7)
Quarter: 2016Q1

REPORT INFORMATION
  Report Type: Spontaneous
  Country: US (occurrence: US)
  Receive Date: 20140228
  Receipt Date: 20160314
  Transmission Date: 20160526
  Serious: Yes (Death, Hospitalization, Other)
  Sender: FDA-Public Use
  Company Number: US-PFIZER INC-2014058921

PATIENT
  Age: 95 Year
  Sex: Female
  Weight: 56.69 kg

DRUGS (8)
  1. LYRICA [Suspect]
     Active Substance: PREGABALIN
     Indication: HEADACHE
     Dosage: 100 MG, 2X/DAY
     Route: 048
  2. LYRICA [Suspect]
     Active Substance: PREGABALIN
     Indication: OSTEOPOROSIS
  3. SYNTHROID [Concomitant]
     Active Substance: LEVOTHYROXINE SODIUM
     Dosage: 0.075 MG, 1X/DAY (IN THE MORNING ON AN EMPTY STOMACH)
  4. LYRICA [Suspect]
     Active Substance: PREGABALIN
     Indication: OSTEOARTHRITIS
  5. LYRICA [Suspect]
     Active Substance: PREGABALIN
     Indication: TYPE 2 DIABETES MELLITUS
  6. PROTONIX [Concomitant]
     Active Substance: PANTOPRAZOLE SODIUM
     Dosage: UNK
  7. LYRICA [Suspect]
     Active Substance: PREGABALIN
     Indication: PAIN
  8. HYDROCODONE [Concomitant]
     Active Substance: HYDROCODONE
     Dosage: UNK

REACTIONS (7)
  - Hip fracture [Unknown]
  - Dizziness [Unknown]
  - Fall [Fatal]
  - Hip fracture [Fatal]
  - Fall [Unknown]
  - Drug ineffective for unapproved indication [Unknown]
  - Coma [Unknown]

NARRATIVE: CASE EVENT DATE: 20130826
